FAERS Safety Report 15709473 (Version 1)
Quarter: 2018Q4

REPORT INFORMATION
  Report Type: Spontaneous
  Country: GB (occurrence: GB)
  Receive Date: 20181211
  Receipt Date: 20181211
  Transmission Date: 20190205
  Serious: Yes (Hospitalization)
  Sender: FDA-Public Use
  Company Number: GB-PFIZER INC-2018503329

PATIENT
  Age: 22 Year
  Sex: Female

DRUGS (2)
  1. SERTRALINE HCL [Suspect]
     Active Substance: SERTRALINE HYDROCHLORIDE
     Indication: PERINATAL DEPRESSION
     Dosage: 50 MG, 1X/DAY (IN THE MORNING)
     Route: 048
     Dates: start: 20161109
  2. LOESTRIN NOS [Suspect]
     Active Substance: ETHINYL ESTRADIOL\NORETHINDRONE ACETATE
     Indication: CONTRACEPTION
     Dosage: 1 DF, 1X/DAY (30 STRENGTH)
     Route: 048
     Dates: start: 20161109

REACTIONS (1)
  - Intracranial pressure increased [Unknown]

NARRATIVE: CASE EVENT DATE: 20181108
